FAERS Safety Report 12475186 (Version 1)
Quarter: 2016Q2

REPORT INFORMATION
  Report Type: Spontaneous
  Country: US (occurrence: US)
  Receive Date: 20160617
  Receipt Date: 20160617
  Transmission Date: 20160815
  Serious: No
  Sender: FDA-Public Use
  Company Number: US-PFIZER INC-2016303542

PATIENT
  Sex: Female
  Weight: 76.2 kg

DRUGS (2)
  1. ADVIL [Suspect]
     Active Substance: IBUPROFEN
     Indication: HEADACHE
     Dosage: 2 DF, UNK
     Route: 048
     Dates: start: 20160429, end: 20160429
  2. ADVIL [Suspect]
     Active Substance: IBUPROFEN
     Dosage: 2 DF, UNK
     Dates: start: 20160528, end: 20160528

REACTIONS (2)
  - Drug ineffective [Unknown]
  - Dizziness [Unknown]

NARRATIVE: CASE EVENT DATE: 20160429
